FAERS Safety Report 24267197 (Version 1)
Quarter: 2024Q3

REPORT INFORMATION
  Report Type: Report from Study
  Country: JP (occurrence: JP)
  Receive Date: 20240830
  Receipt Date: 20240830
  Transmission Date: 20241016
  Serious: Yes (Hospitalization)
  Sender: MERZ
  Company Number: JP-teijin-202402080_XEO_P_1

PATIENT
  Age: 81 Year
  Sex: Male

DRUGS (3)
  1. XEOMIN [Suspect]
     Active Substance: INCOBOTULINUMTOXINA
     Indication: Muscle spasticity
     Dosage: 300 025
     Route: 030
     Dates: start: 20231129, end: 20231129
  2. SYMMETREL [Concomitant]
     Active Substance: AMANTADINE HYDROCHLORIDE
     Indication: Parkinsonism
     Dosage: 50 MG
     Route: 048
  3. DROXIDOPA [Concomitant]
     Active Substance: DROXIDOPA
     Indication: Parkinsonism
     Dosage: 200 MG
     Route: 048

REACTIONS (1)
  - COVID-19 [Recovered/Resolved with Sequelae]

NARRATIVE: CASE EVENT DATE: 20240216
